FAERS Safety Report 8504045-1 (Version None)
Quarter: 2012Q3

REPORT INFORMATION
  Report Type: 
  Country: None (occurrence: None)
  Receive Date: 20120711
  Receipt Date: 20120702
  Transmission Date: 20120928
  Serious: Yes (Other)
  Sender: FDA-Public Use
  Company Number: ES-ELI_LILLY_AND_COMPANY-ES201205009609

PATIENT
  Age: 54 Year
  Sex: Male

DRUGS (4)
  1. CIALIS [Suspect]
     Dosage: 5 MG, QD
  2. LYRICA [Concomitant]
  3. LANSOPRAZOLE [Concomitant]
  4. CIALIS [Suspect]
     Indication: ERECTILE DYSFUNCTION
     Dosage: 10 MG, PRN

REACTIONS (2)
  - DRUG INEFFECTIVE [None]
  - PROSTATE CANCER [None]
